FAERS Safety Report 11422920 (Version 4)
Quarter: 2016Q1

REPORT INFORMATION
  Report Type: Spontaneous
  Country: US (occurrence: US)
  Receive Date: 20150827
  Receipt Date: 20160120
  Transmission Date: 20160525
  Serious: Yes (Other)
  Sender: FDA-Public Use
  Company Number: US-ROCHE-1626229

PATIENT
  Age: 91 Year
  Sex: Female
  Weight: 48.58 kg

DRUGS (7)
  1. ERIVEDGE [Suspect]
     Active Substance: VISMODEGIB
     Indication: BASAL CELL CARCINOMA
     Dosage: 1 CAP ON DAY 1-2 WITH 3RD DAY OFF
     Route: 048
     Dates: start: 20150326
  2. ERIVEDGE [Suspect]
     Active Substance: VISMODEGIB
     Dosage: 3 DAYS ON / 1 DAY OFF
     Route: 048
     Dates: start: 20150327
  3. LEVOFLOXACIN. [Concomitant]
     Active Substance: LEVOFLOXACIN
     Route: 065
  4. FLUOROURACIL CREAM [Concomitant]
     Active Substance: FLUOROURACIL
     Dosage: 5 %
     Route: 065
  5. PREDNISONE. [Concomitant]
     Active Substance: PREDNISONE
     Indication: UPPER RESPIRATORY TRACT INFECTION
     Route: 048
     Dates: start: 201511
  6. NITROFURANTOIN. [Concomitant]
     Active Substance: NITROFURANTOIN
     Indication: URINARY TRACT INFECTION
     Route: 048
     Dates: start: 20150605, end: 20150611
  7. AZITHROMYCIN ANHYDROUS. [Concomitant]
     Active Substance: AZITHROMYCIN ANHYDROUS
     Dosage: 250 AND 500 MG TAB
     Route: 065

REACTIONS (7)
  - Headache [Unknown]
  - Muscle spasms [Not Recovered/Not Resolved]
  - Head discomfort [Not Recovered/Not Resolved]
  - Fatigue [Not Recovered/Not Resolved]
  - Vision blurred [Unknown]
  - Muscle tightness [Not Recovered/Not Resolved]
  - Alopecia [Not Recovered/Not Resolved]

NARRATIVE: CASE EVENT DATE: 201504
